FAERS Safety Report 21925535 (Version 2)
Quarter: 2023Q1

REPORT INFORMATION
  Report Type: Spontaneous
  Country: AE (occurrence: AE)
  Receive Date: 20230130
  Receipt Date: 20230316
  Transmission Date: 20230418
  Serious: Yes (Other)
  Sender: FDA-Public Use
  Company Number: AE-GLAXOSMITHKLINE-AE2023EME009956

PATIENT

DRUGS (1)
  1. BENLYSTA [Suspect]
     Active Substance: BELIMUMAB
     Indication: Systemic lupus erythematosus
     Dosage: 760 MG
     Route: 042
     Dates: start: 20200709, end: 20220922

REACTIONS (7)
  - Intestinal tuberculosis [Recovering/Resolving]
  - Vasculitic ulcer [Unknown]
  - Tuberculosis [Unknown]
  - Ileal ulcer [Unknown]
  - Antineutrophil cytoplasmic antibody positive [Unknown]
  - Granuloma [Unknown]
  - Leiomyoma [Unknown]

NARRATIVE: CASE EVENT DATE: 20220922
